FAERS Safety Report 9299934 (Version 1)
Quarter: 2012Q4

REPORT INFORMATION
  Report Type: Spontaneous
  Country: GR (occurrence: None)
  Receive Date: 20121120
  Receipt Date: 20121120
  Transmission Date: 20130627
  Serious: Yes (Other)
  Sender: FDA-Public Use
  Company Number: ENTC2012-0508

PATIENT
  Age: 85 Year
  Sex: Female

DRUGS (4)
  1. STALEVO [Suspect]
     Indication: PARKINSON^S DISEASE
     Dosage: (50 mg, 2 in 1 D)
     Dates: start: 20121030
  2. STALEVO [Suspect]
     Indication: PARKINSON^S DISEASE
  3. AMLOTENS [Concomitant]
  4. UNIMAZOLE [Concomitant]

REACTIONS (6)
  - Tremor [None]
  - Chills [None]
  - Feeling cold [None]
  - Dizziness [None]
  - Blood pressure increased [None]
  - Heart rate increased [None]
